FAERS Safety Report 10251376 (Version 1)
Quarter: 2014Q2

REPORT INFORMATION
  Report Type: Spontaneous
  Country: US (occurrence: US)
  Receive Date: 20140622
  Receipt Date: 20140622
  Transmission Date: 20141212
  Serious: No
  Sender: FDA-Public Use
  Company Number: US-009507513-1406USA004612

PATIENT
  Sex: Female

DRUGS (2)
  1. NASONEX [Suspect]
     Dosage: UNK
     Dates: start: 2006
  2. MINIVELLE [Concomitant]

REACTIONS (1)
  - Rash [Unknown]
